FAERS Safety Report 17410050 (Version 1)
Quarter: 2020Q1

REPORT INFORMATION
  Report Type: Spontaneous
  Country: TW (occurrence: TW)
  Receive Date: 20200212
  Receipt Date: 20200212
  Transmission Date: 20200409
  Serious: Yes (Hospitalization, Other)
  Sender: FDA-Public Use
  Company Number: TW-AVION PHARMACEUTICALS, LLC-2080213

PATIENT
  Age: 20 Year
  Sex: Female

DRUGS (5)
  1. PREDNISOLONE. [Concomitant]
     Active Substance: PREDNISOLONE
     Route: 065
  2. GLOPERBA [Suspect]
     Active Substance: COLCHICINE
     Indication: IMMUNE THROMBOCYTOPENIC PURPURA
     Route: 065
  3. FAMOTIDINE. [Suspect]
     Active Substance: FAMOTIDINE
     Route: 065
  4. FOLIC ACID. [Concomitant]
     Active Substance: FOLIC ACID
     Route: 065
  5. DANAZOL. [Suspect]
     Active Substance: DANAZOL
     Route: 065

REACTIONS (4)
  - Toxic epidermal necrolysis [Recovered/Resolved]
  - Conjunctivitis [Unknown]
  - Mucosal inflammation [Unknown]
  - Erythema multiforme [Recovered/Resolved]
